FAERS Safety Report 5099433-2 (Version None)
Quarter: 2006Q3

REPORT INFORMATION
  Report Type: 
  Country: None (occurrence: None)
  Receive Date: 20060905
  Receipt Date: 20060905
  Transmission Date: 20061208
  Serious: Yes (Hospitalization, Other)
  Sender: FDA-Public Use
  Company Number: None

PATIENT
  Age: 54 Year
  Sex: Female
  Weight: 58.1 kg

DRUGS (10)
  1. PACLITAXEL [Suspect]
     Indication: OVARIAN CANCER
     Dosage: 280 MG IN NS IV
     Route: 042
     Dates: start: 20060731
  2. FENTANYL [Concomitant]
  3. PERCOCET [Concomitant]
  4. ZANTAC [Concomitant]
  5. REGLAN [Concomitant]
  6. SENNA [Concomitant]
  7. DEXAMETHASONE TAB [Concomitant]
  8. ZOFRAN [Concomitant]
  9. PEPCID [Concomitant]
  10. ATIVAN [Concomitant]

REACTIONS (2)
  - BLOOD PRESSURE SYSTOLIC INCREASED [None]
  - HYPERSENSITIVITY [None]
